FAERS Safety Report 5896470-2 (Version None)
Quarter: 2008Q3

REPORT INFORMATION
  Report Type: 
  Country: None (occurrence: None)
  Receive Date: 20080924
  Receipt Date: 20080912
  Transmission Date: 20090109
  Serious: Yes (Death)
  Sender: FDA-Public Use
  Company Number: BE-PFIZER INC-2008077707

PATIENT
  Sex: Male

DRUGS (1)
  1. SU-011,248 [Suspect]
     Route: 048
     Dates: start: 20080811, end: 20080826

REACTIONS (2)
  - CARDIAC DISORDER [None]
  - PULMONARY OEDEMA [None]
